FAERS Safety Report 13125472 (Version 1)
Quarter: 2017Q1

REPORT INFORMATION
  Report Type: Spontaneous
  Country: US (occurrence: US)
  Receive Date: 20170117
  Receipt Date: 20170117
  Transmission Date: 20170428
  Serious: No
  Sender: FDA-Public Use
  Company Number: None

PATIENT
  Age: 69 Year
  Sex: Female
  Weight: 54.9 kg

DRUGS (13)
  1. CITALOPRAM [Suspect]
     Active Substance: CITALOPRAM HYDROBROMIDE
     Indication: ANXIETY
     Dosage: ?          QUANTITY:1 TABLET(S);?
     Route: 048
     Dates: start: 20161228, end: 20170115
  2. ESTRING [Concomitant]
     Active Substance: ESTRADIOL
  3. ALBUTEROL INHALER [Concomitant]
     Active Substance: ALBUTEROL
  4. FLAXSEED [Concomitant]
     Active Substance: FLAX SEED
  5. BIOTIN [Concomitant]
     Active Substance: BIOTIN
  6. OMEPRAZOLE. [Concomitant]
     Active Substance: OMEPRAZOLE
  7. FISHERMAN^S FRIEND ORIGINAL COUGH SUPPRESSANT [Concomitant]
  8. ADVAIR DISKUS [Concomitant]
     Active Substance: FLUTICASONE PROPIONATE\SALMETEROL XINAFOATE
  9. ATORVASTATIN [Concomitant]
     Active Substance: ATORVASTATIN
  10. ASPIRIN. [Concomitant]
     Active Substance: ASPIRIN
  11. VITAMIN D3 [Concomitant]
     Active Substance: CHOLECALCIFEROL
  12. RANITIDINE. [Concomitant]
     Active Substance: RANITIDINE
  13. GUAIFENESIN. [Concomitant]
     Active Substance: GUAIFENESIN

REACTIONS (13)
  - Balance disorder [None]
  - Pain of skin [None]
  - Withdrawal syndrome [None]
  - Hyperhidrosis [None]
  - Dizziness [None]
  - Headache [None]
  - Product quality issue [None]
  - Fatigue [None]
  - Hypersomnia [None]
  - Disturbance in attention [None]
  - Facial pain [None]
  - Product formulation issue [None]
  - Paraesthesia [None]

NARRATIVE: CASE EVENT DATE: 20170113
